FAERS Safety Report 8346316-8 (Version None)
Quarter: 2012Q2

REPORT INFORMATION
  Report Type: 
  Country: None (occurrence: None)
  Receive Date: 20120507
  Receipt Date: 20120423
  Transmission Date: 20120825
  Serious: Yes (Hospitalization, Other)
  Sender: FDA-Public Use
  Company Number: AUR-APL-2012-01932

PATIENT
  Age: 84 Year
  Sex: Female

DRUGS (3)
  1. CLINORIL [Suspect]
     Indication: PRODUCT USED FOR UNKNOWN INDICATION
     Dosage: 400 MG (200 MG, 2 IN 1 D), UNKNOWN
  2. HYDROCHLOROTHIAZIDE [Suspect]
     Indication: PRODUCT USED FOR UNKNOWN INDICATION
     Dosage: (12.5 MG, 1 D), UNKNOWN
  3. LISINOPRIL [Suspect]
     Indication: PRODUCT USED FOR UNKNOWN INDICATION
     Dosage: (10 MG, 1 D), UNKNOWN

REACTIONS (9)
  - BILIARY TRACT DISORDER [None]
  - PANCREATITIS CHRONIC [None]
  - HYPOXIA [None]
  - OBSTRUCTION [None]
  - ILEUS [None]
  - PANCREATITIS NECROTISING [None]
  - SYNCOPE [None]
  - ATRIAL FIBRILLATION [None]
  - PANCREATITIS ACUTE [None]
